FAERS Safety Report 7483640-5 (Version None)
Quarter: 2011Q2

REPORT INFORMATION
  Report Type: 
  Country: None (occurrence: None)
  Receive Date: 20110517
  Receipt Date: 20110511
  Transmission Date: 20111010
  Serious: Yes (Other)
  Sender: FDA-Public Use
  Company Number: US-PFIZER INC-2007036448

PATIENT
  Sex: Female

DRUGS (2)
  1. NEURONTIN [Suspect]
     Indication: PAIN IN EXTREMITY
     Dosage: 100 MG, UNK
  2. NEURONTIN [Suspect]
     Indication: NEURALGIA
     Dosage: 300 MG, 3X/DAY
     Dates: start: 20000101, end: 20050101

REACTIONS (8)
  - IRRITABILITY [None]
  - DEPRESSION [None]
  - ANXIETY [None]
  - DRUG INEFFECTIVE FOR UNAPPROVED INDICATION [None]
  - THINKING ABNORMAL [None]
  - ABNORMAL BEHAVIOUR [None]
  - SUICIDAL IDEATION [None]
  - ANGER [None]
